FAERS Safety Report 13746784 (Version 1)
Quarter: 2017Q3

REPORT INFORMATION
  Report Type: Spontaneous
  Country: US (occurrence: US)
  Receive Date: 20170712
  Receipt Date: 20170712
  Transmission Date: 20171127
  Serious: No
  Sender: FDA-Public Use
  Company Number: US-ELI_LILLY_AND_COMPANY-US201706005315

PATIENT
  Sex: Male

DRUGS (2)
  1. CIALIS [Suspect]
     Active Substance: TADALAFIL
     Indication: ERECTILE DYSFUNCTION
     Dosage: 5 MG, DAILY
     Route: 048
     Dates: start: 201706, end: 201706
  2. REMERON [Concomitant]
     Active Substance: MIRTAZAPINE
     Indication: ANXIETY

REACTIONS (4)
  - Ear discomfort [Not Recovered/Not Resolved]
  - Tinnitus [Unknown]
  - Ear pain [Recovered/Resolved]
  - Hypoacusis [Unknown]
